FAERS Safety Report 11690963 (Version 1)
Quarter: 2015Q4

REPORT INFORMATION
  Report Type: Spontaneous
  Country: JP (occurrence: JP)
  Receive Date: 20151102
  Receipt Date: 20151102
  Transmission Date: 20160304
  Serious: Yes (Hospitalization)
  Sender: FDA-Public Use
  Company Number: JP-AKORN PHARMACEUTICALS-2015AKN00627

PATIENT
  Age: 63 Year
  Sex: Female

DRUGS (16)
  1. ZIOPTAN [Suspect]
     Active Substance: TAFLUPROST
     Indication: GLAUCOMA
     Dosage: 1 GTT, QD, OU
     Route: 047
     Dates: start: 20130107, end: 201302
  2. SIMVASTATIN. [Concomitant]
     Active Substance: SIMVASTATIN
     Dosage: UNK TABLETS, UNK
  3. CETERIZINE HYDROCHLORIDE [Concomitant]
  4. BENFOTIAMINE [Concomitant]
     Active Substance: BENFOTIAMINE
     Dosage: UNK
     Dates: start: 20130329, end: 20130407
  5. KETOTIFEN FUMARATE. [Concomitant]
     Active Substance: KETOTIFEN FUMARATE
     Dosage: UNK
     Route: 047
     Dates: start: 20130329, end: 20130429
  6. HYALURONATE SODIUM [Concomitant]
     Active Substance: HYALURONATE SODIUM
     Dosage: UNK
  7. ESTAZOLAM. [Concomitant]
     Active Substance: ESTAZOLAM
     Dosage: UNK
  8. ZIOPTAN [Suspect]
     Active Substance: TAFLUPROST
     Dosage: 1 GTT, QD, OU
     Route: 047
     Dates: start: 20130510
  9. CYANOCOBALAMIN. [Concomitant]
     Active Substance: CYANOCOBALAMIN
     Dosage: UNK
  10. URSODIOL. [Concomitant]
     Active Substance: URSODIOL
     Dosage: UNK
     Dates: start: 20130107
  11. TOKI-SHIGYAKU-KA-GOSHUYU-SHOKYO-TO [Concomitant]
     Dosage: UNK
     Dates: start: 20131217, end: 20131227
  12. LOXOPROFEN SODIUM [Concomitant]
     Active Substance: LOXOPROFEN SODIUM
     Dosage: UNK
     Dates: start: 20130329, end: 20130407
  13. HERBAL NOS [Concomitant]
     Active Substance: HERBALS
  14. REBAMIPIDE [Concomitant]
     Active Substance: REBAMIPIDE
     Dosage: UNK
     Dates: start: 20130329, end: 20130407
  15. JUZEN-TAIHO-TO [Concomitant]
     Active Substance: UNSPECIFIED INGREDIENT
     Dosage: UNK
     Dates: start: 20130101, end: 20130801
  16. TIZANIDINE HYODROCHLORIDE [Concomitant]
     Dosage: UNK
     Dates: start: 20130329, end: 20130407

REACTIONS (1)
  - Cholelithiasis [Unknown]

NARRATIVE: CASE EVENT DATE: 20130211
